FAERS Safety Report 5328236-6 (Version None)
Quarter: 2007Q2

REPORT INFORMATION
  Report Type: 
  Country: None (occurrence: None)
  Receive Date: 20070515
  Receipt Date: 20070501
  Transmission Date: 20071010
  Serious: Yes (Hospitalization)
  Sender: FDA-Public Use
  Company Number: 2007BI007501

PATIENT
  Age: 51 Year
  Sex: Female

DRUGS (6)
  1. NATALIZUMAB [Suspect]
     Indication: MULTIPLE SCLEROSIS
     Dosage: 300 MG;QM;IV
     Route: 042
     Dates: start: 20070130
  2. TRILEPTAL [Concomitant]
  3. PAXIL [Concomitant]
  4. LYRICA [Concomitant]
  5. XANAX [Concomitant]
  6. ZANAFLEX [Concomitant]

REACTIONS (1)
  - NO ADVERSE DRUG EFFECT [None]
